FAERS Safety Report 25667440 (Version 2)
Quarter: 2025Q3

REPORT INFORMATION
  Report Type: Spontaneous
  Country: EU (occurrence: EU)
  Receive Date: 20250811
  Receipt Date: 20250918
  Transmission Date: 20251021
  Serious: Yes (Other)
  Sender: APELLIS PHARMACEUTICALS
  Company Number: EU-BIOVITRUM-2025-AT-008382

PATIENT
  Weight: 56 kg

DRUGS (3)
  1. PEGCETACOPLAN [Suspect]
     Active Substance: PEGCETACOPLAN
     Indication: C3 glomerulopathy
     Dosage: FREQUENCY: THURSDAY AND MONDAY
     Route: 058
     Dates: start: 20250612
  2. PEGCETACOPLAN [Suspect]
     Active Substance: PEGCETACOPLAN
     Indication: C3 glomerulopathy
     Dosage: FREQUENCY: THURSDAY AND MONDAY
     Route: 058
     Dates: start: 20250612
  3. PEGCETACOPLAN [Suspect]
     Active Substance: PEGCETACOPLAN
     Route: 058
     Dates: start: 20250612

REACTIONS (8)
  - Off label use [Unknown]
  - Oedema [Recovered/Resolved]
  - Laboratory test abnormal [Not Recovered/Not Resolved]
  - Blood chloride increased [Unknown]
  - Blood uric acid decreased [Unknown]
  - Glucose urine present [Unknown]
  - Bacteraemia [Recovered/Resolved]
  - Weight decreased [Unknown]

NARRATIVE: CASE EVENT DATE: 20250612
